FAERS Safety Report 14544872 (Version 1)
Quarter: 2018Q1

REPORT INFORMATION
  Report Type: Spontaneous
  Country: MX (occurrence: MX)
  Receive Date: 20180217
  Receipt Date: 20180217
  Transmission Date: 20180509
  Serious: Yes (Other)
  Sender: FDA-Public Use
  Company Number: PHHY2018MX020526

PATIENT
  Age: 56 Year
  Sex: Female

DRUGS (3)
  1. GILENYA [Suspect]
     Active Substance: FINGOLIMOD HYDROCHLORIDE
     Indication: MULTIPLE SCLEROSIS
     Dosage: UNK
     Route: 065
     Dates: start: 201605
  2. METHYLPREDNISOLONE. [Concomitant]
     Active Substance: METHYLPREDNISOLONE
     Indication: MULTIPLE SCLEROSIS
     Dosage: 1000 MG, UNK
     Route: 065
  3. HUMAN IMMUNOGLOBULIN [Concomitant]
     Active Substance: HUMAN IMMUNOGLOBULIN G
     Indication: MULTIPLE SCLEROSIS
     Dosage: 1 G/KG, UNK
     Route: 042

REACTIONS (8)
  - Rebound effect [Unknown]
  - Dysaesthesia [Unknown]
  - Disorientation [Unknown]
  - Hemiparesis [Unknown]
  - Multiple sclerosis relapse [Unknown]
  - Dysarthria [Unknown]
  - Irritability [Unknown]
  - Cerebellar syndrome [Unknown]
